FAERS Safety Report 15426228 (Version 1)
Quarter: 2018Q3

REPORT INFORMATION
  Report Type: Spontaneous
  Country: IT (occurrence: IT)
  Receive Date: 20180925
  Receipt Date: 20180925
  Transmission Date: 20181010
  Serious: Yes (Other)
  Sender: FDA-Public Use
  Company Number: IT-ELI_LILLY_AND_COMPANY-IT201809009736

PATIENT
  Age: 70 Year
  Sex: Male
  Weight: 50 kg

DRUGS (2)
  1. PACLITAXEL ACCORD [Concomitant]
     Active Substance: PACLITAXEL
     Indication: GASTRIC CANCER
     Dosage: 118.4 MG, UNKNOWN
     Route: 042
     Dates: start: 20171227
  2. CYRAMZA [Suspect]
     Active Substance: RAMUCIRUMAB
     Indication: GASTRIC CANCER
     Dosage: 400 MG, CYCLICAL
     Route: 042
     Dates: start: 20171227

REACTIONS (3)
  - Regurgitation [Not Recovered/Not Resolved]
  - Asthenia [Not Recovered/Not Resolved]
  - Abdominal distension [Not Recovered/Not Resolved]

NARRATIVE: CASE EVENT DATE: 20180123
